FAERS Safety Report 5706516-X (Version None)
Quarter: 2008Q2

REPORT INFORMATION
  Report Type: 
  Country: None (occurrence: None)
  Receive Date: 20080414
  Receipt Date: 20080408
  Transmission Date: 20081010
  Serious: Yes (Other)
  Sender: FDA-Public Use
  Company Number: 08032436

PATIENT
  Age: 52 Year
  Sex: Male
  Weight: 127.0072 kg

DRUGS (7)
  1. PHENYTOIN SODIUM EXTENDED [Suspect]
     Indication: EPILEPSY
     Dosage: 600MG, QD, ORAL
     Route: 048
  2. PHENYTOIN SODIUM EXTENDED [Suspect]
     Indication: EPILEPSY
     Dosage: 1000MG, QD, ORAL
     Route: 048
  3. IBUPROFEN [Concomitant]
  4. ANTIHYPERTENSIVES (UNK) [Concomitant]
  5. WELLBUTRIN [Concomitant]
  6. TESTOSTERONE [Concomitant]
  7. LISINOPRIL [Concomitant]

REACTIONS (2)
  - ANTICONVULSANT DRUG LEVEL DECREASED [None]
  - CONVULSION [None]
